FAERS Safety Report 7779037-0 (Version None)
Quarter: 2011Q3

REPORT INFORMATION
  Report Type: 
  Country: None (occurrence: None)
  Receive Date: 20110926
  Receipt Date: 20110916
  Transmission Date: 20111222
  Serious: Yes (Hospitalization)
  Sender: FDA-Public Use
  Company Number: US-ABBOTT-11P-163-0717066-00

PATIENT
  Sex: Female
  Weight: 75.818 kg

DRUGS (26)
  1. GLUCOSAMINE CHONDROITIN [Concomitant]
     Indication: ARTHRALGIA
     Dates: start: 20080101
  2. COQ10 [Concomitant]
     Indication: BLOOD CHOLESTEROL
     Dates: start: 20080101
  3. LOPERAMIDE HCL [Concomitant]
     Indication: ANTIDIARRHOEAL SUPPORTIVE CARE
     Dates: start: 20030101
  4. RISPERDAL [Concomitant]
     Indication: DEPRESSION
     Dosage: 0.75MG-1MG DAILY
     Dates: start: 20050101
  5. IMITREX [Concomitant]
     Indication: MIGRAINE
     Dates: start: 20030101
  6. LASIX [Concomitant]
     Indication: JOINT SWELLING
     Dates: start: 20030101
  7. HUMIRA [Suspect]
     Route: 058
  8. XANAX [Concomitant]
     Indication: DEPRESSION
     Dates: start: 20050101
  9. VISTARIL [Concomitant]
     Indication: NAUSEA
     Dates: start: 20030101
  10. GAS-X [Concomitant]
     Indication: FLATULENCE
     Dates: start: 20060101
  11. LOPERAMIDE HCL [Concomitant]
     Indication: CONSTIPATION
  12. CYMBALTA [Concomitant]
     Indication: DEPRESSION
     Dates: start: 20050101
  13. COMPLEX B VITAMIN [Concomitant]
     Indication: MEDICAL DIET
     Dates: start: 20050101
  14. METAMUCIL-2 [Concomitant]
     Indication: CONSTIPATION
     Dates: start: 20070101
  15. FLEXERIL [Concomitant]
     Indication: MUSCLE SPASMS
     Dosage: EVERY NIGHT
     Dates: start: 20090101
  16. NORVASC [Concomitant]
     Indication: HYPERTENSION
     Dates: start: 20070101
  17. ZETIA [Concomitant]
     Indication: BLOOD CHOLESTEROL
     Dates: start: 20080101
  18. POTASSIUM [Concomitant]
     Indication: HYPOKALAEMIA
     Dates: start: 20080101
  19. MYLANTA [Concomitant]
     Indication: FLATULENCE
     Dosage: 2-4 TEASPOONS AS NEEDED
     Dates: start: 20060101
  20. HUMIRA [Suspect]
     Indication: CROHN'S DISEASE
     Dosage: 160 MG (BASELINE)
     Route: 058
     Dates: start: 20080505, end: 20080505
  21. HUMIRA [Suspect]
     Dosage: WEEK 2, ONCE
     Route: 058
  22. HALCION [Concomitant]
     Indication: DEPRESSION
     Dosage: 2-3 TABLETS EVERY NIGHT
     Dates: start: 20050101
  23. PRILOSEC [Concomitant]
     Indication: GASTROOESOPHAGEAL REFLUX DISEASE
     Dates: start: 20090201
  24. MULTI-VITAMIN [Concomitant]
     Indication: MEDICAL DIET
     Dates: start: 20050101
  25. LOVAZA [Concomitant]
     Indication: MEDICAL DIET
     Dates: start: 20050101
  26. TYLENOL-500 [Concomitant]
     Indication: PAIN
     Dates: start: 20050101

REACTIONS (3)
  - HYPOTENSION [None]
  - NON-CARDIAC CHEST PAIN [None]
  - URINARY TRACT INFECTION [None]
